FAERS Safety Report 7101538-9 (Version None)
Quarter: 2010Q4

REPORT INFORMATION
  Report Type: 
  Country: None (occurrence: None)
  Receive Date: 20101115
  Receipt Date: 20101110
  Transmission Date: 20110411
  Serious: Yes (Other)
  Sender: FDA-Public Use
  Company Number: JP-PFIZER INC-2010134832

PATIENT
  Age: 39 Year
  Sex: Female
  Weight: 73.8 kg

DRUGS (6)
  1. LYRICA [Suspect]
     Indication: POST HERPETIC NEURALGIA
     Dosage: 75 MG, 2X/DAY
     Route: 048
     Dates: start: 20101015, end: 20101021
  2. IBUPROFEN [Suspect]
     Indication: PAIN
     Dosage: UNK
     Route: 048
     Dates: start: 20101015, end: 20101020
  3. VALTREX [Concomitant]
     Indication: POST HERPETIC NEURALGIA
     Dosage: 2 DF, 3X/DAY
     Route: 048
     Dates: start: 20101009, end: 20101015
  4. LOXONIN [Concomitant]
     Indication: PAIN
     Dosage: UNK
     Route: 048
     Dates: start: 20101009, end: 20101014
  5. TROXSIN [Concomitant]
     Dosage: 1 DF, 3X/DAY
     Dates: start: 20101011
  6. VIDARABINE [Concomitant]
     Indication: POST HERPETIC NEURALGIA
     Dosage: UNK
     Route: 061
     Dates: start: 20101009, end: 20101020

REACTIONS (3)
  - DRUG INEFFECTIVE [None]
  - DRUG INTERACTION [None]
  - SOMNOLENCE [None]
